FAERS Safety Report 6280257-5 (Version None)
Quarter: 2009Q3

REPORT INFORMATION
  Report Type: 
  Country: None (occurrence: None)
  Receive Date: 20090723
  Receipt Date: 20070724
  Transmission Date: 20100115
  Serious: Yes (Hospitalization, Other)
  Sender: FDA-Public Use
  Company Number: US-ASTRAZENECA-2007UW02197

PATIENT
  Age: 17496 Day
  Sex: Female
  Weight: 101.2 kg

DRUGS (30)
  1. SEROQUEL [Suspect]
     Indication: SCHIZOPHRENIA
     Dosage: 100 MG - 800 MG
     Route: 048
     Dates: start: 20000401
  2. SEROQUEL [Suspect]
     Dosage: 100MG TO 200MG DISPENSED
     Route: 048
     Dates: start: 20021207
  3. SEROQUEL [Suspect]
     Dosage: 300MG TO 400MG
     Route: 048
     Dates: start: 20030104
  4. SEROQUEL [Suspect]
     Dosage: 600MG TO 800MG
     Route: 048
     Dates: start: 20030324
  5. GEODON [Concomitant]
     Dosage: 40 MG - 160 MG
     Route: 048
     Dates: start: 20020501, end: 20020901
  6. GEODON [Concomitant]
     Dates: start: 20090429
  7. HALDOL/HALDOL DECANDATE [Concomitant]
     Dates: start: 19950330
  8. HALDOL/HALDOL DECANDATE [Concomitant]
     Dates: start: 20010103, end: 20020401
  9. RISPERDAL [Concomitant]
     Dosage: 2MG TO 8MG
     Dates: start: 19971120
  10. RISPERDAL [Concomitant]
     Dosage: 4 MG - 16 MG
     Route: 048
     Dates: start: 20020801
  11. ZYPREXA [Concomitant]
     Dosage: 2.5MG TO 30MG
     Dates: start: 19980630
  12. ZYPREXA [Concomitant]
     Route: 048
     Dates: start: 20010103, end: 20020501
  13. DEPAKOTE [Concomitant]
     Dosage: 500MG TO 2000MG
     Dates: start: 19950319
  14. DEPAKOTE [Concomitant]
     Route: 048
     Dates: start: 20030101
  15. LITHIUM CARBONATE [Concomitant]
     Dosage: 1200MG
     Dates: start: 19970119
  16. LITHIUM CARBONATE [Concomitant]
     Route: 048
     Dates: start: 20010101, end: 20020901
  17. LAMICTAL [Concomitant]
     Route: 048
     Dates: start: 20011101, end: 20020901
  18. LAMICTAL [Concomitant]
     Dates: start: 20011119
  19. LISINOPRIL [Concomitant]
     Indication: BLOOD PRESSURE
     Dosage: 5MG TO 10MG DISPENSED
     Dates: start: 20021207
  20. LISINOPRIL [Concomitant]
     Dosage: 20MG TO 40MG
     Dates: start: 20050105
  21. METFORMIN HCL [Concomitant]
     Indication: DIABETES MELLITUS
     Dates: start: 20031203
  22. TRAZODONE [Concomitant]
     Dosage: 50MG TO 200 MG
     Dates: start: 19960918
  23. TRICOR [Concomitant]
     Indication: BLOOD TRIGLYCERIDES INCREASED
     Dosage: 48MG TO 145MG DAILY
     Dates: start: 20050513
  24. BUSPIRONE HCL [Concomitant]
     Dates: start: 20040223
  25. BUSPIRONE HCL [Concomitant]
     Dates: start: 20070813
  26. VISTARIL [Concomitant]
     Dosage: 150MG
     Dates: start: 20060405
  27. CHLORPROMAZINE HCL [Concomitant]
     Dosage: 50MG TO 150MG
     Dates: start: 20031203
  28. CHLORPROMAZINE HCL [Concomitant]
     Dosage: 300MG TO 500MG
     Dates: start: 20060320
  29. NEURONTIN [Concomitant]
     Indication: PAIN MANAGEMENT
     Dosage: 300MG TO 600MG
     Dates: start: 20060320
  30. BETAMETHASONE VALERATE [Concomitant]
     Dosage: 0.1 PERCENT TO SCALP TOP TWO TIMES A DAY
     Route: 061
     Dates: start: 20040226

REACTIONS (29)
  - ANAEMIA [None]
  - BLOOD CHOLESTEROL INCREASED [None]
  - BLOOD TRIGLYCERIDES INCREASED [None]
  - CELLULITIS [None]
  - CHEST DISCOMFORT [None]
  - CHEST PAIN [None]
  - COUGH [None]
  - DELUSION [None]
  - DIABETES MELLITUS INADEQUATE CONTROL [None]
  - DIABETIC COMPLICATION [None]
  - DIABETIC FOOT [None]
  - DIABETIC NEUROPATHY [None]
  - EAR INFECTION [None]
  - EYE INFECTION [None]
  - HYPERTENSION [None]
  - INFECTION [None]
  - INGROWING NAIL [None]
  - MUSCLE STRAIN [None]
  - NEUROPATHY PERIPHERAL [None]
  - NIGHT SWEATS [None]
  - ONYCHOGRYPHOSIS [None]
  - ONYCHOMYCOSIS [None]
  - OTITIS EXTERNA [None]
  - PHARYNGITIS [None]
  - RENAL FAILURE [None]
  - SINUS TACHYCARDIA [None]
  - TACHYCARDIA [None]
  - TINEA PEDIS [None]
  - TYPE 2 DIABETES MELLITUS [None]
